FAERS Safety Report 6447682-0 (Version None)
Quarter: 2009Q4

REPORT INFORMATION
  Report Type: 
  Country: None (occurrence: None)
  Receive Date: 20091120
  Receipt Date: 20091116
  Transmission Date: 20100525
  Serious: Yes (Other)
  Sender: FDA-Public Use
  Company Number: US-BIOGENIDEC-2009BI028657

PATIENT
  Age: 31 Year
  Sex: Female

DRUGS (16)
  1. TYSABRI [Suspect]
     Indication: MULTIPLE SCLEROSIS
     Route: 042
     Dates: start: 20090401, end: 20090724
  2. TYSABRI [Suspect]
     Route: 042
     Dates: start: 20061010, end: 20080402
  3. BACLOFEN [Concomitant]
     Indication: MUSCLE SPASTICITY
  4. ZANAFLEX [Concomitant]
     Indication: MUSCLE SPASTICITY
  5. AMANTADINE [Concomitant]
     Indication: DRUG USE FOR UNKNOWN INDICATION
  6. METOPROLOL [Concomitant]
     Indication: DRUG USE FOR UNKNOWN INDICATION
  7. PROZAC [Concomitant]
     Indication: DRUG USE FOR UNKNOWN INDICATION
  8. PORTIA (HORMONAL BIRTH CONTROL) [Concomitant]
     Indication: DRUG USE FOR UNKNOWN INDICATION
  9. KEPPRA [Concomitant]
     Indication: DRUG USE FOR UNKNOWN INDICATION
  10. IODEINE [Concomitant]
     Indication: DRUG USE FOR UNKNOWN INDICATION
  11. PROVIGIL [Concomitant]
     Indication: DRUG USE FOR UNKNOWN INDICATION
  12. MULTI-VITAMINS [Concomitant]
     Indication: DRUG USE FOR UNKNOWN INDICATION
  13. CALCIUM [Concomitant]
     Indication: DRUG USE FOR UNKNOWN INDICATION
  14. GINKO BILOBA [Concomitant]
     Indication: DRUG USE FOR UNKNOWN INDICATION
  15. FLAX SEED [Concomitant]
     Indication: DRUG USE FOR UNKNOWN INDICATION
  16. CRANBERRY EXTRACT [Concomitant]
     Indication: DRUG USE FOR UNKNOWN INDICATION

REACTIONS (1)
  - CERVICAL DYSPLASIA [None]
